FAERS Safety Report 18509374 (Version 1)
Quarter: 2020Q4

REPORT INFORMATION
  Report Type: Spontaneous
  Country: US (occurrence: US)
  Receive Date: 20201117
  Receipt Date: 20201117
  Transmission Date: 20210114
  Serious: No
  Sender: FDA-Public Use
  Company Number: US-009507513-2011USA002267

PATIENT
  Age: 41 Year
  Sex: Female

DRUGS (1)
  1. GANIRELIX ACETATE INJECTION [Suspect]
     Active Substance: GANIRELIX ACETATE
     Indication: INFERTILITY FEMALE
     Dosage: STRENGTH: 250 MICROGRAM/0.5 ^M^; ONE TIME AS DIRECTED (CONFLICTING INFORMATION)
     Route: 058
     Dates: start: 20201029

REACTIONS (1)
  - Headache [Unknown]

NARRATIVE: CASE EVENT DATE: 202010
